FAERS Safety Report 4468070-2 (Version None)
Quarter: 2004Q4

REPORT INFORMATION
  Report Type: 
  Country: None (occurrence: None)
  Receive Date: 20041004
  Receipt Date: 20041004
  Transmission Date: 20050328
  Serious: Yes (Other)
  Sender: FDA-Public Use
  Company Number: None

PATIENT
  Age: 82 Year
  Sex: Male
  Weight: 98 kg

DRUGS (17)
  1. TRIPLE ANTIBIOTIC OINTMENT [Suspect]
  2. SIMVASTATIN [Concomitant]
  3. CYANOCOBALAMIN [Concomitant]
  4. OMEPRAZOLE [Concomitant]
  5. ISOSORBIDE DINITRATE [Concomitant]
  6. POTASSIUM CHLORIDE [Concomitant]
  7. ALBUTEROL / IPRATROP [Concomitant]
  8. FELODIPINE [Concomitant]
  9. DOCUSATE NA [Concomitant]
  10. BETAMETHASONE DIPROPIONATE [Concomitant]
  11. PREDNISONE [Concomitant]
  12. CEPHALEXIN [Concomitant]
  13. ALBUTEROL [Concomitant]
  14. IPATROPIUM BROMIDE [Concomitant]
  15. NEBULIZER MOUTHPIECE/TUBING/CUP [Concomitant]
  16. ASPIRIN [Concomitant]
  17. EUCERIN LOTION [Concomitant]

REACTIONS (1)
  - RASH [None]
